FAERS Safety Report 10046941 (Version 1)
Quarter: 2014Q1

REPORT INFORMATION
  Report Type: Spontaneous
  Country: US (occurrence: US)
  Receive Date: 20140331
  Receipt Date: 20140331
  Transmission Date: 20141002
  Serious: Yes (Other)
  Sender: FDA-Public Use
  Company Number: US-JHP PHARMACEUTICALS, LLC-JHP201300726

PATIENT
  Age: 8 Year
  Sex: Male
  Weight: 26.7 kg

DRUGS (3)
  1. KETALAR [Suspect]
     Indication: INDUCTION OF ANAESTHESIA
     Dosage: 1.5 MG/KG, SINGLE
     Route: 042
     Dates: start: 20131013, end: 20131013
  2. MORPHINE [Suspect]
     Dosage: 2 MG, SINGLE
     Route: 042
     Dates: start: 20131013, end: 20131013
  3. FOCALIN [Concomitant]
     Dosage: 25 MG, DAILY

REACTIONS (3)
  - Muscle contractions involuntary [Recovered/Resolved]
  - Oxygen saturation decreased [Recovered/Resolved]
  - Off label use [Recovered/Resolved]
